FAERS Safety Report 12371619 (Version 2)
Quarter: 2016Q2

REPORT INFORMATION
  Report Type: Spontaneous
  Country: US (occurrence: US)
  Receive Date: 20160516
  Receipt Date: 20160613
  Transmission Date: 20160815
  Serious: Yes (Death)
  Sender: FDA-Public Use
  Company Number: US-MALLINCKRODT-T201601659

PATIENT
  Age: 67 Year
  Sex: Male

DRUGS (1)
  1. INOMAX [Suspect]
     Active Substance: NITRIC OXIDE
     Indication: OXYGEN SATURATION DECREASED
     Dosage: 40 PPM, CONTINUOUSLY
     Dates: start: 20160414, end: 20160414

REACTIONS (2)
  - Aortic dissection [Fatal]
  - Off label use [Unknown]

NARRATIVE: CASE EVENT DATE: 20160414
